FAERS Safety Report 15691140 (Version 9)
Quarter: 2020Q3

REPORT INFORMATION
  Report Type: Report from Study
  Country: US (occurrence: US)
  Receive Date: 20181205
  Receipt Date: 20200820
  Transmission Date: 20201102
  Serious: Yes (Hospitalization)
  Sender: FDA-Public Use
  Company Number: US-ACTELION-A-NJ2018-182808

PATIENT
  Age: 65 Year
  Sex: Female
  Weight: 48.07 kg

DRUGS (7)
  1. UPTRAVI [Suspect]
     Active Substance: SELEXIPAG
     Dosage: 1400 MCG
     Route: 048
  2. UPTRAVI [Suspect]
     Active Substance: SELEXIPAG
     Indication: PULMONARY ARTERIAL HYPERTENSION
     Dosage: 1200 MCG, BID
     Route: 048
  3. UPTRAVI [Suspect]
     Active Substance: SELEXIPAG
     Dosage: 800 MCG, BID
     Route: 048
  4. UPTRAVI [Suspect]
     Active Substance: SELEXIPAG
     Dosage: 1400 MCG, BID
     Route: 048
  5. OPSUMIT [Suspect]
     Active Substance: MACITENTAN
     Indication: PULMONARY ARTERIAL HYPERTENSION
     Dosage: 10 MG, QD
     Route: 048
  6. SILDENAFIL. [Concomitant]
     Active Substance: SILDENAFIL
     Dosage: UNK
  7. ADCIRCA [Concomitant]
     Active Substance: TADALAFIL

REACTIONS (14)
  - Back pain [Unknown]
  - Pneumonia [Unknown]
  - Muscle spasms [Unknown]
  - Pulmonary hypertension [Unknown]
  - Renal failure [Unknown]
  - Heart rate increased [Unknown]
  - Diarrhoea [Recovering/Resolving]
  - Illness [Unknown]
  - Nephrolithiasis [Unknown]
  - Dyspnoea [Recovering/Resolving]
  - Flank pain [Unknown]
  - Pain in extremity [Unknown]
  - Nausea [Recovering/Resolving]
  - Retching [Unknown]

NARRATIVE: CASE EVENT DATE: 201905
